FAERS Safety Report 8311401-3 (Version None)
Quarter: 2012Q2

REPORT INFORMATION
  Report Type: 
  Country: None (occurrence: None)
  Receive Date: 20120425
  Receipt Date: 20110901
  Transmission Date: 20120825
  Serious: No
  Sender: FDA-Public Use
  Company Number: US-MYLANLABS-2011S1018385

PATIENT
  Sex: Male
  Weight: 85.73 kg

DRUGS (4)
  1. LORAZEPAM [Concomitant]
     Indication: ANXIETY
     Dates: start: 20090101
  2. LAMOTRGINE [Concomitant]
     Indication: BIPOLAR DISORDER
     Dates: start: 20080101
  3. IPRATROPIUM BROMIDE AND ALBUTEROL SULFATE [Suspect]
     Indication: ASTHMA
     Route: 055
  4. IPRATROPIUM BROMIDE AND ALBUTEROL SULFATE [Suspect]
     Indication: DYSPNOEA
     Route: 055

REACTIONS (2)
  - DRUG EFFECT DECREASED [None]
  - DYSPNOEA [None]
